FAERS Safety Report 20552292 (Version 5)
Quarter: 2022Q2

REPORT INFORMATION
  Report Type: Spontaneous
  Country: US (occurrence: US)
  Receive Date: 20220304
  Receipt Date: 20220413
  Transmission Date: 20220721
  Serious: Yes (Other)
  Sender: FDA-Public Use
  Company Number: US-BAYER-2022A032650

PATIENT
  Age: 46 Year
  Sex: Male

DRUGS (1)
  1. MIRALAX [Suspect]
     Active Substance: POLYETHYLENE GLYCOL 3350
     Indication: Colonoscopy
     Dosage: UNK
     Dates: start: 202201

REACTIONS (8)
  - Adverse drug reaction [None]
  - Nausea [None]
  - Nasal congestion [None]
  - Product use in unapproved indication [Unknown]
  - Vomiting [Recovered/Resolved]
  - Palpitations [Recovered/Resolved]
  - Allergic reaction to excipient [None]
  - Heart rate increased [None]

NARRATIVE: CASE EVENT DATE: 20220202
